FAERS Safety Report 8695940 (Version 2)
Quarter: 2013Q4

REPORT INFORMATION
  Report Type: Spontaneous
  Country: US (occurrence: US)
  Receive Date: 20120801
  Receipt Date: 20131031
  Transmission Date: 20140711
  Serious: Yes (Other)
  Sender: FDA-Public Use
  Company Number: US-009507513-1207USA012096

PATIENT
  Age: 52 Year
  Sex: Female

DRUGS (4)
  1. ZOCOR [Suspect]
     Route: 048
  2. GLICLAZIDE [Suspect]
     Dosage: 80 MG, BID
  3. VICTOZA [Suspect]
  4. METFORMIN [Suspect]
     Dosage: 850 MG, TID

REACTIONS (4)
  - Pancreatic carcinoma [Unknown]
  - Abdominal pain upper [Unknown]
  - Jaundice [Unknown]
  - Liver function test abnormal [Unknown]
